FAERS Safety Report 9200971 (Version 1)
Quarter: 2013Q1

REPORT INFORMATION
  Report Type: Spontaneous
  Country: US (occurrence: None)
  Receive Date: 20130327
  Receipt Date: 20130327
  Transmission Date: 20140127
  Serious: Yes (Congenital Anomaly)
  Sender: FDA-Public Use
  Company Number: FK201300927

PATIENT
  Sex: Female

DRUGS (2)
  1. METHOTREXATE (METHOTREXATE) [Suspect]
     Indication: ABORTION INDUCED
     Route: 064
  2. MISOPROSTOL [Suspect]
     Indication: ABORTION INDUCED

REACTIONS (25)
  - Maternal drugs affecting foetus [None]
  - Premature baby [None]
  - Neonatal respiratory distress syndrome [None]
  - Microcephaly [None]
  - Skull malformation [None]
  - Dysmorphism [None]
  - Micrognathia [None]
  - Low set ears [None]
  - Anomaly of external ear congenital [None]
  - Exophthalmos congenital [None]
  - Hypertelorism of orbit [None]
  - Microphthalmos [None]
  - Congenital musculoskeletal anomaly [None]
  - Syndactyly [None]
  - Congenital foot malformation [None]
  - Brachydactyly [None]
  - Adactyly [None]
  - Anterior displaced anus [None]
  - Bone fragmentation [None]
  - Congenital deformity of clavicle [None]
  - Cardiomegaly [None]
  - Lung hyperinflation [None]
  - Cerebral ventricle dilatation [None]
  - Ascites [None]
  - Atrial septal defect [None]
